FAERS Safety Report 10147455 (Version 2)
Quarter: 2014Q2

REPORT INFORMATION
  Report Type: Report from Study
  Country: CA (occurrence: CA)
  Receive Date: 20140501
  Receipt Date: 20140501
  Transmission Date: 20141212
  Serious: Yes (Hospitalization)
  Sender: FDA-Public Use
  Company Number: CA-CELGENEUS-028-10004-13030944

PATIENT
  Age: 36 Year
  Sex: Male
  Weight: 87.62 kg

DRUGS (8)
  1. CC-10004 [Suspect]
     Indication: PSORIASIS
     Dosage: 60 MILLIGRAM
     Route: 048
     Dates: start: 20110712
  2. CC-10004 [Suspect]
     Dosage: 60 MILLIGRAM
     Route: 048
     Dates: start: 20130219
  3. CLOBEX [Concomitant]
     Indication: PSORIASIS
     Dosage: .05 PERCENT
     Route: 061
     Dates: start: 20120613
  4. VERDESCO FOAM [Concomitant]
     Indication: PSORIASIS
     Dosage: .05 PERCENT
     Route: 061
     Dates: start: 20120613
  5. DOVOBET [Concomitant]
     Indication: PSORIASIS
     Dosage: 1 APPLICATION
     Route: 061
     Dates: start: 20120613
  6. TYLENOL [Concomitant]
     Indication: HEADACHE
     Dosage: 325 MILLIGRAM
     Route: 048
     Dates: start: 20130219, end: 20130224
  7. CEFTRIAXONE [Concomitant]
     Indication: OTITIS MEDIA
     Route: 065
     Dates: start: 20130224
  8. CEFTRIAXONE [Concomitant]
     Dosage: 4 GRAM
     Route: 041
     Dates: start: 20130306

REACTIONS (1)
  - Brain abscess [Recovered/Resolved]
